FAERS Safety Report 6094495-8 (Version None)
Quarter: 2009Q1

REPORT INFORMATION
  Report Type: 
  Country: None (occurrence: None)
  Receive Date: 20090224
  Receipt Date: 20090212
  Transmission Date: 20090719
  Serious: Yes (Death, Life-Threatening, Other)
  Sender: FDA-Public Use
  Company Number: 200824191GPV

PATIENT
  Age: 59 Year

DRUGS (3)
  1. FLUDARABINE PHOSPHATE [Suspect]
     Indication: CHRONIC LYMPHOCYTIC LEUKAEMIA
     Dosage: 40 MG/M2, ORAL
     Route: 048
  2. CAMPATH [Suspect]
     Indication: MALIGNANT NEOPLASM PROGRESSION
  3. CYCLOPHOSPHAMIDE [Suspect]
     Dosage: 250MG/M2
     Route: 048

REACTIONS (4)
  - LUNG INFECTION PSEUDOMONAL [None]
  - MALIGNANT NEOPLASM PROGRESSION [None]
  - PSEUDOMONAL SEPSIS [None]
  - SEPTIC SHOCK [None]
